FAERS Safety Report 13638383 (Version 1)
Quarter: 2017Q2

REPORT INFORMATION
  Report Type: Spontaneous
  Country: US (occurrence: US)
  Receive Date: 20170609
  Receipt Date: 20170609
  Transmission Date: 20170830
  Serious: No
  Sender: FDA-Public Use
  Company Number: US-TARO-2016TAR00722

PATIENT
  Age: 66 Year
  Sex: Female
  Weight: 68.27 kg

DRUGS (6)
  1. HIGH BLOOD PRESSURE PILL [Concomitant]
     Active Substance: UNSPECIFIED INGREDIENT
  2. VITAMIN D [Concomitant]
     Active Substance: CHOLECALCIFEROL
  3. BETAMETHASONE DIPROPIONATE CREAM USP 0.05% [Suspect]
     Active Substance: BETAMETHASONE DIPROPIONATE
     Indication: SKIN DISCOLOURATION
     Dosage: 1 UNK, 2X/DAY
     Route: 061
     Dates: start: 20160713, end: 20160715
  4. CALCIUM [Concomitant]
     Active Substance: CALCIUM
  5. WATER PILL FOR HIGH BLOOD PRESSURE [Concomitant]
  6. CLARITIN [Concomitant]
     Active Substance: LORATADINE

REACTIONS (1)
  - Application site pain [Recovered/Resolved]

NARRATIVE: CASE EVENT DATE: 20160715
